FAERS Safety Report 21087512 (Version 1)
Quarter: 2022Q3

REPORT INFORMATION
  Report Type: Spontaneous
  Country: AZ (occurrence: AZ)
  Receive Date: 20220715
  Receipt Date: 20220715
  Transmission Date: 20221027
  Serious: Yes (Hospitalization)
  Sender: FDA-Public Use
  Company Number: AZ-BoehringerIngelheim-2022-BI-180909

PATIENT
  Age: 30 Year
  Sex: Female

DRUGS (8)
  1. MELOXICAM [Suspect]
     Active Substance: MELOXICAM
     Indication: Systemic lupus erythematosus
     Dates: start: 201905
  2. MELOXICAM [Suspect]
     Active Substance: MELOXICAM
     Dates: start: 202001
  3. MELOXICAM [Suspect]
     Active Substance: MELOXICAM
     Dates: start: 202001
  4. METHYLPREDNISOLONE [Suspect]
     Active Substance: METHYLPREDNISOLONE
     Indication: Systemic lupus erythematosus
     Dates: start: 201905
  5. PLAQUENIL [Suspect]
     Active Substance: HYDROXYCHLOROQUINE SULFATE
     Indication: Systemic lupus erythematosus
     Dates: start: 201905, end: 20200101
  6. METHYLPREDNISOLONE [Concomitant]
     Active Substance: METHYLPREDNISOLONE
     Indication: Systemic lupus erythematosus
     Route: 042
     Dates: start: 20200101, end: 20200104
  7. CELLCEPT [Concomitant]
     Active Substance: MYCOPHENOLATE MOFETIL
     Indication: Systemic lupus erythematosus
     Dates: start: 202001, end: 202001
  8. PANTAP [Concomitant]
     Indication: Systemic lupus erythematosus
     Dates: start: 202001, end: 202001

REACTIONS (2)
  - Drug ineffective [Recovered/Resolved]
  - Off label use [Recovered/Resolved]

NARRATIVE: CASE EVENT DATE: 20190501
